FAERS Safety Report 8454379-4 (Version None)
Quarter: 2012Q2

REPORT INFORMATION
  Report Type: 
  Country: None (occurrence: None)
  Receive Date: 20120621
  Receipt Date: 20120611
  Transmission Date: 20120825
  Serious: Yes (Hospitalization, Other)
  Sender: FDA-Public Use
  Company Number: FR-AMGEN-FRASP2011048773

PATIENT
  Age: 39 Year
  Sex: Female

DRUGS (9)
  1. ENBREL [Suspect]
     Indication: RHEUMATOID ARTHRITIS
     Dosage: 50 MG, WEEKLY
     Route: 058
     Dates: start: 20040901, end: 20110901
  2. METHOTREXATE SODIUM [Suspect]
     Dosage: UNK
     Dates: start: 20100301, end: 20110101
  3. FOLIC ACID [Concomitant]
     Dosage: UNK
  4. FOSAMAX [Concomitant]
     Dosage: UNK
  5. PREDNISONE TAB [Concomitant]
     Dosage: UNK
  6. METHOTREXATE SODIUM [Suspect]
     Indication: RHEUMATOID ARTHRITIS
     Dosage: 20 MG, UNK
     Dates: start: 20040101, end: 20080101
  7. VITAMIN D [Concomitant]
     Dosage: UNK
  8. POTASSIUM CHLORIDE [Concomitant]
     Dosage: UNK
  9. PANTOPRAZOLE [Concomitant]
     Dosage: UNK

REACTIONS (7)
  - DYSKINESIA [None]
  - BLINDNESS [None]
  - MIGRAINE [None]
  - EYE PAIN [None]
  - TRANSAMINASES INCREASED [None]
  - SARCOIDOSIS [None]
  - VIITH NERVE PARALYSIS [None]
